FAERS Safety Report 4388604-6 (Version None)
Quarter: 2004Q2

REPORT INFORMATION
  Report Type: 
  Country: None (occurrence: None)
  Receive Date: 20040624
  Receipt Date: 20040613
  Transmission Date: 20050107
  Serious: Yes (Other)
  Sender: FDA-Public Use
  Company Number: 2004039287

PATIENT
  Sex: Male

DRUGS (1)
  1. VIAGRA [Suspect]
     Indication: ILL-DEFINED DISORDER
     Dosage: AS NEEDED

REACTIONS (3)
  - LARYNGEAL OEDEMA [None]
  - OESOPHAGEAL DISORDER [None]
  - SWELLING [None]
